FAERS Safety Report 9384862 (Version 1)
Quarter: 2013Q3

REPORT INFORMATION
  Report Type: Spontaneous
  Country: FR (occurrence: None)
  Receive Date: 20130701
  Receipt Date: 20130701
  Transmission Date: 20140515
  Serious: Yes (Hospitalization)
  Sender: FDA-Public Use
  Company Number: SYM-2013-05137

PATIENT
  Age: 76 Year
  Sex: Female

DRUGS (3)
  1. MONO-TILDIEM [Suspect]
     Indication: DEPRESSION
     Route: 048
     Dates: start: 20121231, end: 20130527
  2. ARIMIDEX [Suspect]
     Indication: HORMONE THERAPY
     Route: 048
     Dates: start: 20130218, end: 20130527
  3. EXEMESTANE (EXEMESTANE) (EXEMESTANE) [Concomitant]

REACTIONS (3)
  - Hepatitis [None]
  - Cholestasis [None]
  - Cell death [None]
